FAERS Safety Report 4356807-2 (Version None)
Quarter: 2004Q2

REPORT INFORMATION
  Report Type: 
  Country: None (occurrence: None)
  Receive Date: 20040507
  Receipt Date: 20040429
  Transmission Date: 20050107
  Serious: Yes (Death)
  Sender: FDA-Public Use
  Company Number: EM2004-0224

PATIENT
  Age: 33 Year
  Sex: Male

DRUGS (8)
  1. MACROLIN [Suspect]
     Indication: HIV INFECTION
     Dosage: 4.5  MIU, BID,SUBCUTAN.
     Route: 058
     Dates: start: 20040204, end: 20040208
  2. MACROLIN [Suspect]
     Indication: HIV INFECTION
     Dosage: 4.5  MIU, BID,SUBCUTAN.
     Route: 058
     Dates: start: 20040316, end: 20040320
  3. MACROLIN [Suspect]
  4. SUSTIVA [Concomitant]
  5. VIDEX [Concomitant]
  6. RETROVIR [Concomitant]
  7. STILNOX (ZOLPIDEM) [Concomitant]
  8. KALETRA [Concomitant]

REACTIONS (19)
  - AORTO-DUODENAL FISTULA [None]
  - BACK PAIN [None]
  - BLOOD PRESSURE DECREASED [None]
  - CHILLS [None]
  - DISEASE RECURRENCE [None]
  - GASTRITIS [None]
  - GASTROINTESTINAL HAEMORRHAGE [None]
  - GENERAL PHYSICAL HEALTH DETERIORATION [None]
  - HAEMATEMESIS [None]
  - HAEMODYNAMIC INSTABILITY [None]
  - HEART RATE INCREASED [None]
  - LYMPHADENOPATHY [None]
  - MULTI-ORGAN FAILURE [None]
  - MYALGIA [None]
  - MYCOBACTERIAL INFECTION [None]
  - PERITONEAL HAEMORRHAGE [None]
  - PLATELET COUNT DECREASED [None]
  - PYREXIA [None]
  - RETROPERITONEAL HAEMORRHAGE [None]
